FAERS Safety Report 7756853-2 (Version None)
Quarter: 2011Q3

REPORT INFORMATION
  Report Type: 
  Country: None (occurrence: None)
  Receive Date: 20110916
  Receipt Date: 20110907
  Transmission Date: 20111222
  Serious: Yes (Other)
  Sender: FDA-Public Use
  Company Number: AU-JNJFOC-20110903262

PATIENT
  Sex: Male

DRUGS (1)
  1. SIMPONI [Suspect]
     Indication: ACCIDENTAL EXPOSURE
     Route: 050

REACTIONS (2)
  - INJURY ASSOCIATED WITH DEVICE [None]
  - EXPOSURE TO CONTAMINATED DEVICE [None]
